FAERS Safety Report 10334743 (Version 1)
Quarter: 2014Q3

REPORT INFORMATION
  Report Type: Spontaneous
  Country: RU (occurrence: RU)
  Receive Date: 20140723
  Receipt Date: 20140723
  Transmission Date: 20150326
  Serious: Yes (Hospitalization)
  Sender: FDA-Public Use
  Company Number: RU-TEVA-495318ISR

PATIENT
  Age: 51 Year
  Sex: Female

DRUGS (2)
  1. EQUORAL [Suspect]
     Active Substance: CYCLOSPORINE
     Route: 048
  2. PREDNISOLONE. [Concomitant]
     Active Substance: PREDNISOLONE

REACTIONS (1)
  - Renal pain [Recovering/Resolving]
